FAERS Safety Report 6299037-X (Version None)
Quarter: 2009Q3

REPORT INFORMATION
  Report Type: 
  Country: None (occurrence: None)
  Receive Date: 20090806
  Receipt Date: 20090804
  Transmission Date: 20100115
  Serious: Yes (Death)
  Sender: FDA-Public Use
  Company Number: US-RB-014648-09

PATIENT
  Sex: Female
  Weight: 76.5 kg

DRUGS (11)
  1. SUBOXONE [Suspect]
     Route: 060
     Dates: start: 20090130
  2. PRAVASTATIN [Concomitant]
     Indication: DRUG USE FOR UNKNOWN INDICATION
     Dosage: DOSING INFORMATION UNKNOWN.
     Route: 065
  3. LYRICA [Concomitant]
     Route: 065
  4. POTASSIUM CHLORIDE [Concomitant]
     Indication: DRUG USE FOR UNKNOWN INDICATION
     Dosage: DOSING INFORMATION UNKNOWN.
     Route: 065
  5. TRAZODONE HCL [Concomitant]
     Indication: DRUG USE FOR UNKNOWN INDICATION
     Route: 065
  6. ANTIHYPERTENSIVE [Concomitant]
     Indication: HYPERTENSION
     Dosage: DOSING INFORMATION UNKNOWN.
     Route: 065
  7. LASIX [Concomitant]
     Indication: DRUG USE FOR UNKNOWN INDICATION
     Dosage: DOSING INFORMATION UNKNOWN.
     Route: 065
  8. ADIPEX [Suspect]
     Dosage: AMOUNT USED UNKNOWN.
     Route: 065
     Dates: end: 20090401
  9. ETHANOL [Suspect]
     Dosage: AMOUNT USED UNKNOWN.
     Route: 065
     Dates: end: 20090401
  10. HYDROMORPHONE HCL [Suspect]
     Dosage: AMOUNT USED UNKNOWN.
     Route: 065
     Dates: end: 20090401
  11. TRAMADOL HCL [Concomitant]
     Indication: DRUG USE FOR UNKNOWN INDICATION
     Dosage: DOSING INFORMATION UNKNOWN.
     Route: 065

REACTIONS (2)
  - COMPLETED SUICIDE [None]
  - DRUG TOXICITY [None]
